FAERS Safety Report 4541925-6 (Version None)
Quarter: 2004Q4

REPORT INFORMATION
  Report Type: 
  Country: None (occurrence: None)
  Receive Date: 20041227
  Receipt Date: 20041216
  Transmission Date: 20050328
  Serious: Yes (Other)
  Sender: FDA-Public Use
  Company Number: 2004-12-0771

PATIENT
  Sex: Male

DRUGS (2)
  1. BETAMETHASONE DIPROPIONATE [Suspect]
     Indication: UPPER LIMB FRACTURE
     Dosage: INTRAMUSCULAR
     Route: 030
     Dates: start: 20041110
  2. IBUPROFEN [Suspect]
     Dosage: ORAL
     Route: 048

REACTIONS (3)
  - ABDOMINAL PAIN UPPER [None]
  - EATING DISORDER [None]
  - WEIGHT DECREASED [None]
